FAERS Safety Report 7389268-X (Version None)
Quarter: 2011Q2

REPORT INFORMATION
  Report Type: 
  Country: None (occurrence: None)
  Receive Date: 20110401
  Receipt Date: 20110324
  Transmission Date: 20111010
  Serious: Yes (Hospitalization)
  Sender: FDA-Public Use
  Company Number: JP-BAYER-2011-023556

PATIENT
  Age: 63 Year
  Sex: Male

DRUGS (2)
  1. ASPIRIN [Suspect]
     Indication: ANGINA PECTORIS
  2. ASPIRIN [Suspect]
     Indication: MITRAL VALVE INCOMPETENCE
     Dosage: DAILY DOSE 100 MG
     Route: 048

REACTIONS (3)
  - ABDOMINAL PAIN [None]
  - MELAENA [None]
  - LARGE INTESTINAL ULCER HAEMORRHAGE [None]
